FAERS Safety Report 8884840 (Version 1)
Quarter: 2012Q4

REPORT INFORMATION
  Report Type: 
  Country: KR (occurrence: KR)
  Receive Date: 20121102
  Receipt Date: 20121102
  Transmission Date: 20130627
  Serious: Yes (Other)
  Sender: FDA-Public Use
  Company Number: KR-ASTELLAS-2011JP002230

PATIENT
  Age: 63 Year
  Sex: Male

DRUGS (6)
  1. TACROLIMUS [Suspect]
     Indication: IMMUNOSUPPRESSANT DRUG THERAPY
     Dosage: 6 mg, Unknown/D
     Route: 065
  2. TACROLIMUS [Suspect]
     Dosage: 3 mg, Unknown/D
     Route: 065
  3. DIGESTIVES, INCL ENZYMES [Concomitant]
     Route: 048
  4. ANTIHISTAMINES [Concomitant]
     Route: 048
  5. EXPECTORANTS [Concomitant]
     Route: 048
  6. CELLCEPT [Concomitant]
     Route: 048

REACTIONS (1)
  - Maculopathy [Unknown]
